FAERS Safety Report 15085248 (Version 9)
Quarter: 2020Q2

REPORT INFORMATION
  Report Type: Report from Study
  Country: US (occurrence: US)
  Receive Date: 20180628
  Receipt Date: 20200422
  Transmission Date: 20200713
  Serious: Yes (Hospitalization, Other)
  Sender: FDA-Public Use
  Company Number: US-ACTELION-A-NJ2018-174376

PATIENT
  Age: 43 Year
  Sex: Male

DRUGS (21)
  1. ELIQUIS [Concomitant]
     Active Substance: APIXABAN
  2. ALBUTEROL. [Concomitant]
     Active Substance: ALBUTEROL
  3. LINZESS [Concomitant]
     Active Substance: LINACLOTIDE
  4. LEVOFLOXACIN. [Concomitant]
     Active Substance: LEVOFLOXACIN
     Dosage: 500 MG, UNK
  5. OMEPRAZOLE. [Concomitant]
     Active Substance: OMEPRAZOLE
  6. CHLORHEX [Concomitant]
     Active Substance: CHLORHEXIDINE GLUCONATE
  7. PENICILLIN [Concomitant]
     Active Substance: PENICILLIN
     Dosage: 500 MG, UNK
  8. SULFAMETHOXAZOLE AND TRIMETHOPRIM [Concomitant]
     Active Substance: SULFAMETHOXAZOLE\TRIMETHOPRIM
  9. PANTOPRAZOLE [Concomitant]
     Active Substance: PANTOPRAZOLE
     Dosage: 40 MG, UNK
  10. HUMALOG [Concomitant]
     Active Substance: INSULIN LISPRO
  11. OPSUMIT [Suspect]
     Active Substance: MACITENTAN
     Indication: PULMONARY ARTERIAL HYPERTENSION
     Dosage: 10 MG, QD
     Route: 048
     Dates: start: 20170317
  12. BACLOFEN. [Concomitant]
     Active Substance: BACLOFEN
  13. PROAIR HFA [Concomitant]
     Active Substance: ALBUTEROL SULFATE
  14. OXYCODONE [Concomitant]
     Active Substance: OXYCODONE
  15. CLINDAMYCIN. [Concomitant]
     Active Substance: CLINDAMYCIN
     Dosage: 300 MG, UNK
  16. PREDNISONE. [Concomitant]
     Active Substance: PREDNISONE
  17. EXTRA ACTION COUGH [Concomitant]
     Active Substance: DEXTROMETHORPHAN HYDROBROMIDE\GUAIFENESIN
  18. ZINC OXIDE. [Concomitant]
     Active Substance: ZINC OXIDE
  19. CEFDINIR. [Concomitant]
     Active Substance: CEFDINIR
  20. EPINEPHRINE. [Concomitant]
     Active Substance: EPINEPHRINE
     Dosage: 0.3 MG, UNK
  21. DOXYCYCLINE. [Concomitant]
     Active Substance: DOXYCYCLINE
     Dosage: 100 MG, UNK

REACTIONS (4)
  - Hospitalisation [Unknown]
  - Arterial repair [Not Recovered/Not Resolved]
  - Dialysis [Unknown]
  - Localised infection [Recovered/Resolved]

NARRATIVE: CASE EVENT DATE: 20181114
